FAERS Safety Report 11511095 (Version 1)
Quarter: 2015Q3

REPORT INFORMATION
  Report Type: Spontaneous
  Country: US (occurrence: US)
  Receive Date: 20150915
  Receipt Date: 20150915
  Transmission Date: 20151125
  Serious: Yes (Other)
  Sender: FDA-Public Use
  Company Number: US-CONCORDIA PHARMACEUTICALS INC.-CO-ZO-US-2015-061

PATIENT
  Age: 62 Year
  Sex: Female

DRUGS (16)
  1. ZONEGRAN [Suspect]
     Active Substance: ZONISAMIDE
     Indication: EPILEPSY
     Route: 048
     Dates: start: 2012, end: 201210
  2. ZONEGRAN [Interacting]
     Active Substance: ZONISAMIDE
     Route: 048
     Dates: start: 2014, end: 201405
  3. LAMICTAL XR [Interacting]
     Active Substance: LAMOTRIGINE
     Dosage: 600 MG/DAY
     Route: 048
     Dates: start: 201312, end: 201312
  4. TRAZODONE [Concomitant]
     Active Substance: TRAZODONE HYDROCHLORIDE
     Indication: SLEEP DISORDER
     Route: 065
     Dates: start: 1999
  5. ZONEGRAN [Interacting]
     Active Substance: ZONISAMIDE
     Dosage: 400 MG/DAY
     Route: 048
     Dates: start: 201308, end: 201311
  6. ZONEGRAN [Interacting]
     Active Substance: ZONISAMIDE
     Dosage: 300 MG/DAY
     Route: 048
     Dates: start: 201210, end: 201308
  7. ZONEGRAN [Interacting]
     Active Substance: ZONISAMIDE
     Dosage: 300 MG/DAY
     Route: 048
     Dates: start: 201311, end: 2013
  8. LAMICTAL XR [Interacting]
     Active Substance: LAMOTRIGINE
     Indication: PARTIAL SEIZURES
     Route: 048
     Dates: end: 20120208
  9. LAMICTAL XR [Interacting]
     Active Substance: LAMOTRIGINE
     Dosage: 600 MG/DAY
     Route: 048
     Dates: start: 20131124, end: 2013
  10. LAMICTAL XR [Interacting]
     Active Substance: LAMOTRIGINE
     Dosage: 500 MG/DAY
     Route: 048
     Dates: start: 201312, end: 20131211
  11. LAMICTAL XR [Interacting]
     Active Substance: LAMOTRIGINE
     Dates: start: 2014
  12. LAMICTAL XR [Interacting]
     Active Substance: LAMOTRIGINE
     Dosage: 200 MG/DAY
     Dates: start: 20120209, end: 20131123
  13. LAMICTAL XR [Interacting]
     Active Substance: LAMOTRIGINE
     Dosage: 400 MG/DAY
     Route: 048
     Dates: start: 2013, end: 201312
  14. LAMICTAL XR [Interacting]
     Active Substance: LAMOTRIGINE
     Dosage: 600 MG/DAY
     Route: 048
     Dates: start: 20131212
  15. ASPIRIN. [Concomitant]
     Active Substance: ASPIRIN
     Indication: PRODUCT USED FOR UNKNOWN INDICATION
     Route: 065
     Dates: start: 201308
  16. CELEXA [Concomitant]
     Active Substance: CITALOPRAM HYDROBROMIDE
     Indication: DEPRESSION
     Route: 065
     Dates: end: 2014

REACTIONS (19)
  - Partial seizures [Recovered/Resolved]
  - Palpitations [Recovered/Resolved]
  - Drug interaction [Recovered/Resolved]
  - Cough [Not Recovered/Not Resolved]
  - Nephrolithiasis [Recovered/Resolved]
  - Musculoskeletal chest pain [Recovered/Resolved]
  - Fatigue [Recovered/Resolved]
  - Nausea [Not Recovered/Not Resolved]
  - Anticonvulsant drug level decreased [Recovered/Resolved]
  - Paraesthesia oral [Not Recovered/Not Resolved]
  - Dissociation [Recovered/Resolved]
  - Anger [Recovered/Resolved]
  - Dizziness [Recovered/Resolved]
  - Agitation [Recovered/Resolved]
  - Glossodynia [Not Recovered/Not Resolved]
  - Aphasia [Not Recovered/Not Resolved]
  - Dyspnoea [Recovering/Resolving]
  - Incorrect dose administered [Not Recovered/Not Resolved]
  - Hypokinesia [Recovered/Resolved]

NARRATIVE: CASE EVENT DATE: 2012
